FAERS Safety Report 18182131 (Version 2)
Quarter: 2020Q4

REPORT INFORMATION
  Report Type: Spontaneous
  Country: US (occurrence: US)
  Receive Date: 20200821
  Receipt Date: 20201014
  Transmission Date: 20210113
  Serious: No
  Sender: FDA-Public Use
  Company Number: US-PFIZER INC-2020117528

PATIENT
  Age: 60 Year
  Sex: Female

DRUGS (2)
  1. LORAZEPAM. [Concomitant]
     Active Substance: LORAZEPAM
     Dosage: 1 MG, 4X/DAY
  2. EFFEXOR XR [Suspect]
     Active Substance: VENLAFAXINE HYDROCHLORIDE
     Dosage: 150 MG, DAILY [EFFEXOR XR 150 MG. ONE DAILY]

REACTIONS (4)
  - Stress [Unknown]
  - Condition aggravated [Unknown]
  - Panic disorder [Unknown]
  - Depression [Unknown]
